FAERS Safety Report 13856278 (Version 1)
Quarter: 2017Q3

REPORT INFORMATION
  Report Type: Other
  Country: IT (occurrence: IT)
  Receive Date: 20170810
  Receipt Date: 20170810
  Transmission Date: 20171127
  Serious: Yes (Life-Threatening, Hospitalization)
  Sender: FDA-Public Use
  Company Number: IT-B. BRAUN MEDICAL INC.-2024471

PATIENT
  Age: 62 Year
  Sex: Male

DRUGS (3)
  1. CIPROFLOXACIN. [Suspect]
     Active Substance: CIPROFLOXACIN
  2. METRONIDAZOLE. [Suspect]
     Active Substance: METRONIDAZOLE
  3. CEFTAZIDIME. [Suspect]
     Active Substance: CEFTAZIDIME

REACTIONS (7)
  - Pseudomembranous colitis [None]
  - Listeriosis [Recovered/Resolved]
  - Clostridium difficile infection [Recovered/Resolved]
  - Septic shock [Recovered/Resolved]
  - Bacteraemia [None]
  - Coma [Recovered/Resolved]
  - Meningitis [Recovered/Resolved]
